FAERS Safety Report 18901985 (Version 3)
Quarter: 2022Q2

REPORT INFORMATION
  Report Type: Report from Study
  Country: None (occurrence: US)
  Receive Date: 20210217
  Receipt Date: 20220413
  Transmission Date: 20220720
  Serious: Yes (Other)
  Sender: FDA-Public Use
  Company Number: US-AKCEA THERAPEUTICS-2021IS001096

PATIENT
  Age: 75 Year
  Sex: Female
  Weight: 45.5 kg

DRUGS (11)
  1. TEGSEDI [Suspect]
     Active Substance: INOTERSEN SODIUM
     Indication: Hereditary neuropathic amyloidosis
     Route: 058
     Dates: end: 20210316
  2. DEVICE [Suspect]
     Active Substance: DEVICE
  3. ACETAMINOPHEN [Concomitant]
     Active Substance: ACETAMINOPHEN
     Route: 065
  4. TORSEMIDE [Concomitant]
     Active Substance: TORSEMIDE
     Route: 065
  5. SILDENAFIL [Concomitant]
     Active Substance: SILDENAFIL
     Route: 065
  6. PRAVASTATIN SODIUM [Concomitant]
     Active Substance: PRAVASTATIN SODIUM
     Route: 065
  7. AMIODARONE [Concomitant]
     Active Substance: AMIODARONE
     Route: 065
  8. URSODIOL [Concomitant]
     Active Substance: URSODIOL
     Route: 065
  9. METFORMIN HYDROCHLORIDE [Concomitant]
     Active Substance: METFORMIN HYDROCHLORIDE
     Route: 065
  10. PRADAXA [Concomitant]
     Active Substance: DABIGATRAN ETEXILATE MESYLATE
     Route: 065
  11. KLOR-CON M20 [Concomitant]
     Active Substance: POTASSIUM CHLORIDE
     Route: 065

REACTIONS (16)
  - Neuropathy peripheral [Unknown]
  - Productive cough [Unknown]
  - Dyspnoea at rest [Unknown]
  - Fatigue [Unknown]
  - Speech disorder [Unknown]
  - Tongue disorder [Unknown]
  - Hypoaesthesia oral [Unknown]
  - Dysphagia [Unknown]
  - Swollen tongue [Unknown]
  - Limb discomfort [Unknown]
  - Nausea [Unknown]
  - Muscular weakness [Unknown]
  - Hypoaesthesia [Unknown]
  - Tremor [Unknown]
  - Fine motor skill dysfunction [Unknown]
  - Wheelchair user [Unknown]
